FAERS Safety Report 23184482 (Version 3)
Quarter: 2023Q4

REPORT INFORMATION
  Report Type: Spontaneous
  Country: US (occurrence: US)
  Receive Date: 20231115
  Receipt Date: 20231117
  Transmission Date: 20240110
  Serious: No
  Sender: FDA-Public Use
  Company Number: US-002147023-NVSC2023US242980

PATIENT
  Age: 1 Month
  Sex: Male

DRUGS (1)
  1. ZOLGENSMA [Suspect]
     Active Substance: ONASEMNOGENE ABEPARVOVEC-XIOI
     Indication: Spinal muscular atrophy
     Dosage: UNK (ONE SINGLE DOSE)
     Route: 042
     Dates: start: 20231108

REACTIONS (2)
  - Salivary hypersecretion [Unknown]
  - Irritability [Unknown]

NARRATIVE: CASE EVENT DATE: 20231109
